FAERS Safety Report 22168093 (Version 18)
Quarter: 2025Q2

REPORT INFORMATION
  Report Type: Spontaneous
  Country: CO (occurrence: CO)
  Receive Date: 20230403
  Receipt Date: 20250630
  Transmission Date: 20250716
  Serious: Yes (Hospitalization, Other)
  Sender: BIOMARIN
  Company Number: CO-SA-SAC20220727001163

PATIENT
  Age: 23 Year
  Sex: Male
  Weight: 43 kg

DRUGS (15)
  1. LARONIDASE [Suspect]
     Active Substance: LARONIDASE
     Indication: Mucopolysaccharidosis I
     Dosage: 28 MG (10 DF (VIALS)), QW
     Dates: start: 20080117, end: 20240223
  2. LARONIDASE [Suspect]
     Active Substance: LARONIDASE
  3. LARONIDASE [Suspect]
     Active Substance: LARONIDASE
     Dosage: 28 MG (10 DF (VIALS)), QW
     Dates: start: 2024
  4. LARONIDASE [Suspect]
     Active Substance: LARONIDASE
     Dosage: 29 MG, QW
     Dates: start: 2024
  5. LAMOTRIGINE [Concomitant]
     Active Substance: LAMOTRIGINE
     Indication: Eye disorder
  6. ENALAPRIL [Concomitant]
     Active Substance: ENALAPRIL
     Indication: Cardiac murmur
     Dosage: 5 MG, BID (5 MG, ONE TABLET IN THE MORNING AND ONE TABLET IN THE EVENING)
     Dates: start: 2018
  7. Lotesol [Concomitant]
     Indication: Product used for unknown indication
     Dosage: SINGLE DROP AT NIGHT (RIGHT EYE)
  8. Freegen [Concomitant]
     Indication: Eye lubrication therapy
     Dosage: 5 MG 1 DOSE EVERY 6 HOUR
  9. LUMIGAN [Concomitant]
     Active Substance: BIMATOPROST
     Indication: Product used for unknown indication
     Dosage: ONE DROPS EVERY NIGHT
  10. Glaucomed [Concomitant]
     Indication: Ocular discomfort
     Dosage: 3 DF, TID
  11. Glaucomed [Concomitant]
     Dosage: 3 DF, QD
  12. Glaucomed [Concomitant]
     Dosage: 1 DF, QD
  13. Glaucomed [Concomitant]
  14. Glaucomed [Concomitant]
     Dosage: 1 DF, BID (ONE IN THE MORNING AND ONE IN THE EVENING)
  15. LORATADINE [Concomitant]
     Active Substance: LORATADINE
     Indication: Product used for unknown indication

REACTIONS (23)
  - Cataract [Recovering/Resolving]
  - Vision blurred [Recovered/Resolved]
  - Uveitis [Not Recovered/Not Resolved]
  - Optic neuritis [Not Recovered/Not Resolved]
  - Blindness [Not Recovered/Not Resolved]
  - Eye pain [Recovered/Resolved]
  - Eye haemorrhage [Not Recovered/Not Resolved]
  - Intraocular pressure increased [Recovering/Resolving]
  - Inflammation [Recovered/Resolved]
  - HIV infection [Recovering/Resolving]
  - Glaucoma [Not Recovered/Not Resolved]
  - Corneal opacity [Recovered/Resolved]
  - Headache [Not Recovered/Not Resolved]
  - Sleep disorder due to a general medical condition [Recovered/Resolved]
  - Conjunctivitis [Recovered/Resolved]
  - Productive cough [Recovering/Resolving]
  - Ocular hyperaemia [Recovering/Resolving]
  - Eye swelling [Recovering/Resolving]
  - Visual impairment [Recovering/Resolving]
  - Sinusitis [Recovering/Resolving]
  - Respiratory tract congestion [Recovering/Resolving]
  - Glare [Unknown]
  - Inappropriate schedule of product administration [Unknown]

NARRATIVE: CASE EVENT DATE: 20180101
